FAERS Safety Report 9268205 (Version 2)
Quarter: 2014Q1

REPORT INFORMATION
  Report Type: Report from Study
  Country: US (occurrence: US)
  Receive Date: 20130502
  Receipt Date: 20140314
  Transmission Date: 20141002
  Serious: Yes (Other)
  Sender: FDA-Public Use
  Company Number: US-ALEXION PHARMACEUTICALS INC.-A201201803

PATIENT
  Sex: 0

DRUGS (3)
  1. SOLIRIS [Suspect]
     Indication: PAROXYSMAL NOCTURNAL HAEMOGLOBINURIA
     Dosage: UNK, QW
     Route: 042
  2. SOLIRIS [Suspect]
     Dosage: 900 MG UNK
     Route: 042
     Dates: end: 20121011
  3. ELTROMBOPAG [Concomitant]
     Dosage: UNK
     Dates: start: 20120807, end: 20121018

REACTIONS (4)
  - Allogenic bone marrow transplantation therapy [Unknown]
  - Haemoglobin increased [Recovering/Resolving]
  - Amniocentesis abnormal [Unknown]
  - Exposure during pregnancy [Recovered/Resolved]
